FAERS Safety Report 15112757 (Version 2)
Quarter: 2018Q3

REPORT INFORMATION
  Report Type: Report from Study
  Country: US (occurrence: US)
  Receive Date: 20180705
  Receipt Date: 20180718
  Transmission Date: 20181010
  Serious: No
  Sender: FDA-Public Use
  Company Number: US-TAKEDA-2018TUS021253

PATIENT
  Sex: Male

DRUGS (1)
  1. PONATINIB [Suspect]
     Active Substance: PONATINIB
     Indication: ACUTE LYMPHOCYTIC LEUKAEMIA (IN REMISSION)
     Dosage: 45 MG, QD
     Route: 048
     Dates: start: 20180616

REACTIONS (6)
  - Abdominal distension [Unknown]
  - Blood potassium abnormal [Unknown]
  - Blood pressure abnormal [Unknown]
  - Chest pain [Unknown]
  - Platelet count abnormal [Unknown]
  - Pneumonia [Unknown]
